FAERS Safety Report 9100935 (Version 1)
Quarter: 2013Q1

REPORT INFORMATION
  Report Type: Spontaneous
  Country: AR (occurrence: AR)
  Receive Date: 20130215
  Receipt Date: 20130215
  Transmission Date: 20140127
  Serious: Yes (Death)
  Sender: FDA-Public Use
  Company Number: PHHY2013AR011419

PATIENT
  Age: 71 Year
  Sex: Male

DRUGS (1)
  1. LAPENAX [Suspect]
     Indication: SCHIZOPHRENIA
     Route: 048

REACTIONS (6)
  - Prostate cancer [Fatal]
  - Cardiac failure [Fatal]
  - Bronchitis [Fatal]
  - Parkinson^s disease [Fatal]
  - Pneumonia [Fatal]
  - Haemodynamic instability [Fatal]
